FAERS Safety Report 13373420 (Version 1)
Quarter: 2017Q1

REPORT INFORMATION
  Report Type: Spontaneous
  Country: US (occurrence: US)
  Receive Date: 20170327
  Receipt Date: 20170327
  Transmission Date: 20170429
  Serious: Yes (Hospitalization)
  Sender: FDA-Public Use
  Company Number: US-LPDUSPRD-20170315

PATIENT
  Age: 58 Year
  Sex: Male

DRUGS (2)
  1. DEHYDRATED ALCOHOL [Suspect]
     Active Substance: ALCOHOL
     Dosage: DOSE UNKNOWN
     Route: 050
  2. BLEOMYCIN [Suspect]
     Active Substance: BLEOMYCIN SULFATE
     Dosage: UNKNOWN
     Route: 065

REACTIONS (1)
  - Respiratory tract oedema [Unknown]
